FAERS Safety Report 8394418-2 (Version None)
Quarter: 2012Q2

REPORT INFORMATION
  Report Type: 
  Country: None (occurrence: None)
  Receive Date: 20120530
  Receipt Date: 20120523
  Transmission Date: 20120825
  Serious: Yes (Death, Life-Threatening, Other)
  Sender: FDA-Public Use
  Company Number: PHHY2012JP012486

PATIENT
  Sex: Male
  Weight: 60 kg

DRUGS (5)
  1. ASTOMIN [Concomitant]
     Dosage: 3 DF, UNK
     Route: 048
     Dates: start: 20090429, end: 20100217
  2. RED BLOOD CELLS, CONCENTRATED [Concomitant]
     Dosage: 2 U, EVERY WEEK
     Dates: start: 20080509, end: 20100225
  3. EXJADE [Suspect]
     Indication: IRON OVERLOAD
     Dosage: 1000 MG, DAILY
     Route: 048
     Dates: start: 20090429, end: 20100217
  4. LANSOPRAZOLE [Concomitant]
     Dosage: 15 MG, UNK
     Route: 048
     Dates: start: 20090429, end: 20100217
  5. URIEF [Concomitant]
     Dosage: 8 MG, UNK
     Route: 048
     Dates: start: 20090429, end: 20100217

REACTIONS (14)
  - RENAL FAILURE [None]
  - LUNG INFILTRATION [None]
  - ABASIA [None]
  - NEOPLASM MALIGNANT [None]
  - DEHYDRATION [None]
  - CELLULITIS [None]
  - PYREXIA [None]
  - LYMPHADENOPATHY [None]
  - CALCIFICATION OF MUSCLE [None]
  - PAIN IN EXTREMITY [None]
  - URINE OUTPUT DECREASED [None]
  - PULMONARY OEDEMA [None]
  - NEOPLASM PROGRESSION [None]
  - SEPSIS [None]
